FAERS Safety Report 6978426-1 (Version None)
Quarter: 2010Q3

REPORT INFORMATION
  Report Type: 
  Country: None (occurrence: None)
  Receive Date: 20100913
  Receipt Date: 20100908
  Transmission Date: 20110219
  Serious: Yes (Death)
  Sender: FDA-Public Use
  Company Number: TH-SANOFI-AVENTIS-2010SA054216

PATIENT
  Age: 76 Year
  Sex: Male
  Weight: 68 kg

DRUGS (5)
  1. OXALIPLATIN [Suspect]
     Route: 041
     Dates: start: 20100303, end: 20100303
  2. LEUCOVORIN CALCIUM [Suspect]
     Route: 041
     Dates: start: 20100303, end: 20100304
  3. FLUOROURACIL [Suspect]
     Route: 041
     Dates: start: 20100303, end: 20100304
  4. DEXAMETHASONE [Concomitant]
     Dates: start: 20100303, end: 20100305
  5. RAMOSETRON [Concomitant]
     Route: 042
     Dates: start: 20100303, end: 20100305

REACTIONS (4)
  - CHILLS [None]
  - DIARRHOEA [None]
  - FEBRILE NEUTROPENIA [None]
  - PYREXIA [None]
